FAERS Safety Report 7287728-3 (Version None)
Quarter: 2011Q1

REPORT INFORMATION
  Report Type: 
  Country: None (occurrence: None)
  Receive Date: 20110207
  Receipt Date: 20110207
  Transmission Date: 20110831
  Serious: Yes (Other)
  Sender: FDA-Public Use
  Company Number: None

PATIENT
  Age: 54 Year
  Sex: Female
  Weight: 61.2356 kg

DRUGS (3)
  1. OXYCONTIN [Suspect]
     Indication: FIBROMYALGIA
     Dosage: 1 TABLET 3 X DAILY PO
     Route: 048
  2. OXYCONTIN [Suspect]
     Indication: BACK PAIN
     Dosage: 1 TABLET 3 X DAILY PO
     Route: 048
  3. OXYCONTIN [Suspect]
     Indication: NECK PAIN
     Dosage: 1 TABLET 3 X DAILY PO
     Route: 048

REACTIONS (5)
  - DRUG INEFFECTIVE [None]
  - NAUSEA [None]
  - GASTROINTESTINAL DISORDER [None]
  - PRODUCT FORMULATION ISSUE [None]
  - PRODUCT MEASURED POTENCY ISSUE [None]
